FAERS Safety Report 24334948 (Version 1)
Quarter: 2024Q3

REPORT INFORMATION
  Report Type: Report from Study
  Country: US (occurrence: US)
  Receive Date: 20240918
  Receipt Date: 20240918
  Transmission Date: 20241016
  Serious: Yes (Other)
  Sender: BOEHRINGER INGELHEIM
  Company Number: US-BoehringerIngelheim-2024-BI-051314

PATIENT
  Age: 60 Year
  Sex: Female

DRUGS (1)
  1. SPEVIGO [Suspect]
     Active Substance: SPESOLIMAB-SBZO
     Indication: Generalised pustular psoriasis
     Route: 058
     Dates: start: 20240910, end: 20240910

REACTIONS (3)
  - Generalised pustular psoriasis [Not Recovered/Not Resolved]
  - Infusion site discomfort [Unknown]
  - Skin lesion [Unknown]

NARRATIVE: CASE EVENT DATE: 20240910
